FAERS Safety Report 19036306 (Version 1)
Quarter: 2021Q1

REPORT INFORMATION
  Report Type: Spontaneous
  Country: US (occurrence: US)
  Receive Date: 20210319
  Receipt Date: 20210319
  Transmission Date: 20210420
  Serious: Yes (Other)
  Sender: FDA-Public Use
  Company Number: None

PATIENT
  Age: 80 Year
  Sex: Male
  Weight: 70.65 kg

DRUGS (2)
  1. FLEBOGAMMA [Suspect]
     Active Substance: HUMAN IMMUNOGLOBULIN G
     Dates: start: 20210314
  2. FLEBOGAMMA [Suspect]
     Active Substance: HUMAN IMMUNOGLOBULIN G
     Indication: IMMUNODEFICIENCY COMMON VARIABLE
     Dosage: ?          OTHER FREQUENCY:ONCE;?
     Route: 042
     Dates: start: 20210314

REACTIONS (7)
  - Nausea [None]
  - Diarrhoea [None]
  - Hypersensitivity [None]
  - Vomiting [None]
  - Pallor [None]
  - Lethargy [None]
  - Infusion related reaction [None]

NARRATIVE: CASE EVENT DATE: 20210314
